FAERS Safety Report 6927503-X (Version None)
Quarter: 2010Q3

REPORT INFORMATION
  Report Type: 
  Country: None (occurrence: None)
  Receive Date: 20100816
  Receipt Date: 20100816
  Transmission Date: 20110219
  Serious: Yes (Life-Threatening, Hospitalization, Other)
  Sender: FDA-Public Use
  Company Number: None

PATIENT
  Age: 46 Year
  Sex: Female
  Weight: 180 kg

DRUGS (4)
  1. SAPHRIS [Suspect]
     Indication: BIPOLAR II DISORDER
     Dosage: 10 MG ONCE AT NIGHT BY MOUTH
     Route: 048
     Dates: start: 20100620
  2. SAPHRIS [Suspect]
     Indication: INSOMNIA
     Dosage: 10 MG ONCE AT NIGHT BY MOUTH
     Route: 048
     Dates: start: 20100620
  3. SAPHRIS [Suspect]
     Indication: BIPOLAR II DISORDER
     Dosage: 10 MG ONCE AT NIGHT BY MOUTH
     Route: 048
     Dates: start: 20100624
  4. SAPHRIS [Suspect]
     Indication: INSOMNIA
     Dosage: 10 MG ONCE AT NIGHT BY MOUTH
     Route: 048
     Dates: start: 20100624

REACTIONS (6)
  - ANGINA PECTORIS [None]
  - ASTHENIA [None]
  - DIZZINESS [None]
  - FEELING ABNORMAL [None]
  - HEADACHE [None]
  - NAUSEA [None]
